FAERS Safety Report 8329876-2 (Version None)
Quarter: 2012Q2

REPORT INFORMATION
  Report Type: 
  Country: None (occurrence: None)
  Receive Date: 20120502
  Receipt Date: 20120423
  Transmission Date: 20120825
  Serious: Yes (Other)
  Sender: FDA-Public Use
  Company Number: PHEH2012US008804

PATIENT
  Sex: Female

DRUGS (2)
  1. CLOZARIL [Suspect]
  2. CLOZAPINE [Suspect]

REACTIONS (14)
  - PAIN [None]
  - MUSCLE SWELLING [None]
  - MANIA [None]
  - PAIN IN EXTREMITY [None]
  - ERYTHEMA [None]
  - ANGER [None]
  - NECK PAIN [None]
  - GAIT DISTURBANCE [None]
  - FEELING DRUNK [None]
  - EUPHORIC MOOD [None]
  - HEADACHE [None]
  - MUSCULOSKELETAL PAIN [None]
  - SWELLING FACE [None]
  - DEPRESSED MOOD [None]
